FAERS Safety Report 10053389 (Version 2)
Quarter: 2014Q2

REPORT INFORMATION
  Report Type: Spontaneous
  Country: US (occurrence: US)
  Receive Date: 20140402
  Receipt Date: 20140407
  Transmission Date: 20141212
  Serious: No
  Sender: FDA-Public Use
  Company Number: US-PFIZER INC-2014087870

PATIENT
  Sex: Female

DRUGS (3)
  1. ADVIL PM [Suspect]
     Indication: INJURY
     Dosage: UNK
  2. ADVIL [Suspect]
     Dosage: UNK
  3. IBUPROFEN [Suspect]
     Dosage: 800 MG, UNK

REACTIONS (6)
  - Off label use [Unknown]
  - Overdose [Unknown]
  - Restless legs syndrome [Recovered/Resolved]
  - Sleep disorder [Unknown]
  - Discomfort [Unknown]
  - Abdominal discomfort [Unknown]
